FAERS Safety Report 24594347 (Version 2)
Quarter: 2025Q3

REPORT INFORMATION
  Report Type: Spontaneous
  Country: US (occurrence: US)
  Receive Date: 20241108
  Receipt Date: 20250810
  Transmission Date: 20251021
  Serious: No
  Sender: ALEXION PHARMACEUTICALS
  Company Number: 202410USA029561US

PATIENT
  Sex: Male

DRUGS (6)
  1. XIGDUO XR [Suspect]
     Active Substance: DAPAGLIFLOZIN PROPANEDIOL\METFORMIN HYDROCHLORIDE
     Route: 065
  2. FARXIGA [Suspect]
     Active Substance: DAPAGLIFLOZIN PROPANEDIOL
     Indication: Pulmonary fibrosis
     Dosage: UNK UNK, QD
  3. OFEV [Suspect]
     Active Substance: NINTEDANIB
     Indication: Pulmonary fibrosis
     Dosage: 300 MILLIGRAM, QD
     Dates: start: 20220718
  4. OFEV [Suspect]
     Active Substance: NINTEDANIB
     Dosage: 300 MILLIGRAM, QD
     Dates: start: 20220718
  5. OFEV [Suspect]
     Active Substance: NINTEDANIB
     Dosage: 300 MILLIGRAM, QD
     Dates: start: 20220718
  6. OFEV [Suspect]
     Active Substance: NINTEDANIB
     Dosage: 300 MILLIGRAM, QD
     Dates: start: 20220718

REACTIONS (7)
  - Faeces soft [Unknown]
  - Asthenia [Unknown]
  - Flatulence [Unknown]
  - Diarrhoea [Unknown]
  - Arthralgia [Unknown]
  - Pain in extremity [Unknown]
  - Pulmonary function test abnormal [Unknown]
